FAERS Safety Report 8612720-3 (Version None)
Quarter: 2012Q3

REPORT INFORMATION
  Report Type: 
  Country: None (occurrence: None)
  Receive Date: 20120822
  Receipt Date: 20110822
  Transmission Date: 20120928
  Serious: No
  Sender: FDA-Public Use
  Company Number: US-ASTRAZENECA-2011SE50196

PATIENT
  Sex: Male

DRUGS (1)
  1. SYMBICORT [Suspect]
     Route: 055
     Dates: start: 20110819

REACTIONS (4)
  - PALPITATIONS [None]
  - THROAT IRRITATION [None]
  - PRODUCTIVE COUGH [None]
  - NASAL INFLAMMATION [None]
